FAERS Safety Report 5207730-2 (Version None)
Quarter: 2006Q4

REPORT INFORMATION
  Report Type: 
  Country: None (occurrence: None)
  Receive Date: 20061030
  Receipt Date: 20060920
  Transmission Date: 20070319
  Serious: No
  Sender: FDA-Public Use
  Company Number: 2006CT000730

PATIENT
  Age: 59 Year
  Sex: Female
  Weight: 92.9874 kg

DRUGS (22)
  1. VENTAVIS [Suspect]
     Indication: PULMONARY HYPERTENSION
     Dosage: 2.5 UG; X DAY; INH;  5 UG; 4 X DAY; INH
     Route: 055
     Dates: start: 20051003, end: 20060920
  2. VENTAVIS [Suspect]
     Indication: PULMONARY HYPERTENSION
     Dosage: 2.5 UG; X DAY; INH;  5 UG; 4 X DAY; INH
     Route: 055
     Dates: start: 20051031, end: 20060920
  3. AMLODIPINE [Concomitant]
  4. ASPIRIN [Concomitant]
  5. DIGOXIN [Concomitant]
  6. FUROSEMIDE [Concomitant]
  7. K-DUR 10 [Concomitant]
  8. PREDNISONE [Concomitant]
  9. SPIRONOLACTONE [Concomitant]
  10. METOLAZONE [Concomitant]
  11. ATACAND [Concomitant]
  12. COREG [Concomitant]
  13. ATORVASTATIN CALCIUM [Concomitant]
  14. PANTOPRAZOLE SODIUM [Concomitant]
  15. IMDUR [Concomitant]
  16. FOLIC ACID [Concomitant]
  17. HUMALOG [Concomitant]
  18. LANTUS [Concomitant]
  19. VITAMIN E [Concomitant]
  20. PULMICORT [Concomitant]
  21. WARFARIN SODIUM [Concomitant]
  22. METHOTREXATE [Concomitant]

REACTIONS (3)
  - COUGH [None]
  - DRY MOUTH [None]
  - DRY THROAT [None]
